FAERS Safety Report 4982065-1 (Version None)
Quarter: 2006Q2

REPORT INFORMATION
  Report Type: 
  Country: None (occurrence: None)
  Receive Date: 20060425
  Receipt Date: 20050414
  Transmission Date: 20061013
  Serious: Yes (Hospitalization, Other)
  Sender: FDA-Public Use
  Company Number: US-MERCK-0504USA02384

PATIENT
  Age: 64 Year
  Sex: Female
  Weight: 90 kg

DRUGS (2)
  1. VIOXX [Suspect]
     Indication: PROCEDURAL PAIN
     Route: 048
     Dates: start: 20010401, end: 20020607
  2. ASPIRIN [Concomitant]
     Route: 065

REACTIONS (3)
  - ARTHROPATHY [None]
  - CEREBROVASCULAR ACCIDENT [None]
  - THYROID DISORDER [None]
